FAERS Safety Report 15753728 (Version 1)
Quarter: 2018Q4

REPORT INFORMATION
  Report Type: Spontaneous
  Country: FI (occurrence: FI)
  Receive Date: 20181222
  Receipt Date: 20181222
  Transmission Date: 20190205
  Serious: Yes (Other)
  Sender: FDA-Public Use
  Company Number: FI-ACCORD-096557

PATIENT
  Age: 13 Year
  Sex: Male
  Weight: 73 kg

DRUGS (5)
  1. HUMIRA [Suspect]
     Active Substance: ADALIMUMAB
     Indication: CROHN^S DISEASE
     Route: 058
  2. PREDNISOLONE. [Suspect]
     Active Substance: PREDNISOLONE
     Indication: TUBULOINTERSTITIAL NEPHRITIS
     Route: 048
  3. CORTIMENT [Concomitant]
     Indication: CROHN^S DISEASE
  4. AMLODIPINE [Suspect]
     Active Substance: AMLODIPINE BESYLATE
     Indication: TUBULOINTERSTITIAL NEPHRITIS
     Route: 065
     Dates: start: 2017
  5. PENTASA [Concomitant]
     Active Substance: MESALAMINE
     Indication: CROHN^S DISEASE
     Route: 048

REACTIONS (9)
  - Renal failure [Recovering/Resolving]
  - Blood pressure increased [Unknown]
  - Tubulointerstitial nephritis [Recovering/Resolving]
  - Off label use [Unknown]
  - Red blood cell sedimentation rate abnormal [Recovered/Resolved]
  - Haemoglobin decreased [Recovering/Resolving]
  - Blood creatinine increased [Recovering/Resolving]
  - Drug specific antibody [Unknown]
  - Renal tubular injury [Recovering/Resolving]

NARRATIVE: CASE EVENT DATE: 2017
